FAERS Safety Report 5990410-3 (Version None)
Quarter: 2008Q4

REPORT INFORMATION
  Report Type: 
  Country: None (occurrence: None)
  Receive Date: 20081209
  Receipt Date: 20081124
  Transmission Date: 20090506
  Serious: Yes (Other)
  Sender: FDA-Public Use
  Company Number: 2008S1019649

PATIENT
  Age: 49 Year
  Sex: Male

DRUGS (1)
  1. NITROGLYCERIN [Suspect]
     Indication: FROSTBITE
     Dosage: 0.8 MG; EVERY HOUR; TRANSDERMAL
     Route: 062

REACTIONS (5)
  - ALTERED STATE OF CONSCIOUSNESS [None]
  - ATAXIA [None]
  - MALAISE [None]
  - NEUROLOGICAL SYMPTOM [None]
  - VOMITING [None]
